FAERS Safety Report 9432438 (Version 1)
Quarter: 2013Q3

REPORT INFORMATION
  Report Type: Spontaneous
  Country: BR (occurrence: BR)
  Receive Date: 20130731
  Receipt Date: 20130731
  Transmission Date: 20140515
  Serious: Yes (Other)
  Sender: FDA-Public Use
  Company Number: BR-PFIZER INC-2013217130

PATIENT
  Age: 77 Year
  Sex: Female
  Weight: 84 kg

DRUGS (3)
  1. XALATAN [Suspect]
     Indication: GLAUCOMA
     Dosage: 1 DROP IN EACH EYE, 1X/DAY
     Route: 047
  2. XALATAN [Suspect]
     Indication: CATARACT
  3. XALACOM [Suspect]
     Indication: GLAUCOMA
     Dosage: 1 DROP, IN EACH EYE, 2X/DAY
     Route: 047

REACTIONS (2)
  - Cataract [Unknown]
  - Off label use [Not Recovered/Not Resolved]
